FAERS Safety Report 8305169-4 (Version None)
Quarter: 2012Q1

REPORT INFORMATION
  Report Type: 
  Country: None (occurrence: None)
  Receive Date: 20120326
  Receipt Date: 20110128
  Transmission Date: 20120608
  Serious: Yes (Other)
  Sender: FDA-Public Use
  Company Number: PHHY2011US07371

PATIENT
  Age: 69 Year
  Sex: Female
  Weight: 81.2 kg

DRUGS (12)
  1. PLAVIX [Concomitant]
  2. AMLODIPINE BESYLATE [Concomitant]
  3. FUROSEMIDE [Concomitant]
  4. ASPIRIN [Concomitant]
  5. TASIGNA [Suspect]
     Indication: CHRONIC MYELOID LEUKAEMIA
     Dosage: 400 MG, BID, ORAL,  200 MG, BID, ORAL
     Route: 048
     Dates: start: 20101201
  6. JANUVIA [Concomitant]
  7. NITRO PATCH (GLYCERYL TRINITRATE) [Concomitant]
  8. POTASSIUM CHLORIDE [Concomitant]
  9. METOPROLOL TARTRATE [Concomitant]
  10. LIPITOR [Concomitant]
  11. ANAGRELIDE HCL [Concomitant]
  12. ICAPS (MINERALS NOS, VITAMINS NOS) [Concomitant]

REACTIONS (1)
  - MYOCARDIAL INFARCTION [None]
